FAERS Safety Report 20870651 (Version 1)
Quarter: 2022Q2

REPORT INFORMATION
  Report Type: Other
  Country: US (occurrence: None)
  Receive Date: 20220525
  Receipt Date: 20220525
  Transmission Date: 20220721
  Serious: Yes (Hospitalization)
  Sender: FDA-Public Use
  Company Number: US-ROCHE-2894995

PATIENT
  Age: 60 Year
  Sex: Female
  Weight: 109.87 kg

DRUGS (15)
  1. OCREVUS [Suspect]
     Active Substance: OCRELIZUMAB
     Indication: Relapsing-remitting multiple sclerosis
     Dosage: (PRESCRIBED AS 300 MG ON DAY 1 AND DAY 15 AND 600MG ONCE IN 6 MONTHS)?DATE OF TREATMENT: /FEB/2018,
     Route: 042
     Dates: start: 201702
  2. UNSPECIFIED INGREDIENT [Suspect]
     Active Substance: UNSPECIFIED INGREDIENT
     Indication: COVID-19
     Route: 065
  3. SINGULAIR [Concomitant]
     Active Substance: MONTELUKAST SODIUM
     Indication: Asthma
     Route: 048
  4. HUMALOG KWIKPEN [Concomitant]
     Active Substance: INSULIN LISPRO
     Indication: Diabetes mellitus
     Dosage: U100; SLIDING SCALE BREAKFAST, LUNCH DINNER
  5. LANTUS SOLOSTAR [Concomitant]
     Active Substance: INSULIN GLARGINE
     Indication: Diabetes mellitus
     Dosage: U100; TAKES 40 UNITS A BEDTIME
  6. CRESTOR [Concomitant]
     Active Substance: ROSUVASTATIN CALCIUM
     Indication: Blood cholesterol increased
     Route: 048
  7. ZETIA [Concomitant]
     Active Substance: EZETIMIBE
     Indication: Blood cholesterol increased
     Route: 048
  8. PROAIR HFA [Concomitant]
     Active Substance: ALBUTEROL SULFATE
  9. FOSAMAX [Concomitant]
     Active Substance: ALENDRONATE SODIUM
     Dosage: TAKES ON TUESDAY
     Route: 048
  10. NEURONTIN [Concomitant]
     Active Substance: GABAPENTIN
     Dosage: 300 MG TABLETS; TAKES 3 TABLETS AT BEDTIME
     Route: 048
  11. BACLOFEN [Concomitant]
     Active Substance: BACLOFEN
     Dosage: CAN TAKE 1 PILL THREE TIMES A DAY AS NEEDED
  12. SYMBICORT [Concomitant]
     Active Substance: BUDESONIDE\FORMOTEROL FUMARATE DIHYDRATE
     Dosage: 80/4.5- TWO PUFFS TWICE A DAY
  13. KRILL OIL [Concomitant]
     Active Substance: DIETARY SUPPLEMENT\KRILL OIL
  14. MAGNESIUM OXIDE [Concomitant]
     Active Substance: MAGNESIUM OXIDE
     Dosage: TAKES AT NIGHT TIME
  15. BENADRYL [Concomitant]
     Active Substance: DIPHENHYDRAMINE HYDROCHLORIDE

REACTIONS (6)
  - Fall [Unknown]
  - Femur fracture [Not Recovered/Not Resolved]
  - Pyrexia [Recovered/Resolved]
  - Rash [Recovered/Resolved]
  - Hypertension [Recovered/Resolved]
  - COVID-19 [Not Recovered/Not Resolved]

NARRATIVE: CASE EVENT DATE: 20210419
